FAERS Safety Report 8331722-8 (Version None)
Quarter: 2012Q2

REPORT INFORMATION
  Report Type: 
  Country: None (occurrence: None)
  Receive Date: 20120502
  Receipt Date: 20110426
  Transmission Date: 20120825
  Serious: No
  Sender: FDA-Public Use
  Company Number: US-ASTRAZENECA-2011SE25113

PATIENT
  Sex: Female

DRUGS (12)
  1. VITAMIN B-12 [Concomitant]
  2. LOVAZA [Concomitant]
     Dosage: 1 GM TWO TABLETS TWICE A DAY
  3. FOLIC ACID [Concomitant]
  4. DIGESTIVE ADVANTAGE [Concomitant]
     Indication: IRRITABLE BOWEL SYNDROME
  5. CALCIUM [Concomitant]
  6. VITAMIN A [Concomitant]
  7. ASPIRIN [Concomitant]
     Indication: CARDIAC DISORDER
  8. ENTOCORT EC [Suspect]
     Route: 048
  9. FEOSOL [Concomitant]
  10. PROMETHAZINE [Concomitant]
     Dosage: 12.5 TABS EVERY SIX HOURS AS NEEDED
  11. VITAMIN E [Concomitant]
  12. VITAMIN C [Concomitant]

REACTIONS (1)
  - MIGRAINE [None]
